FAERS Safety Report 5614730-7 (Version None)
Quarter: 2008Q1

REPORT INFORMATION
  Report Type: 
  Country: None (occurrence: None)
  Receive Date: 20080201
  Receipt Date: 20080128
  Transmission Date: 20080703
  Serious: Yes (Hospitalization)
  Sender: FDA-Public Use
  Company Number: 12779

PATIENT
  Age: 59 Year
  Sex: Male

DRUGS (1)
  1. MORPHINE SUL TAB [Suspect]
     Indication: INTENTIONAL OVERDOSE
     Dosage: 99 TABLETS ORAL
     Route: 048
     Dates: start: 20080114

REACTIONS (2)
  - INTENTIONAL OVERDOSE [None]
  - SUICIDE ATTEMPT [None]
